FAERS Safety Report 25187807 (Version 1)
Quarter: 2025Q2

REPORT INFORMATION
  Report Type: Other
  Country: US (occurrence: US)
  Receive Date: 20250411
  Receipt Date: 20250411
  Transmission Date: 20250717
  Serious: Yes (Death, Other)
  Sender: ALVOGEN
  Company Number: US-ALVOGEN-2025096935

PATIENT
  Age: 35 Year
  Sex: Female

DRUGS (10)
  1. LABETALOL [Suspect]
     Active Substance: LABETALOL
     Indication: Suicide attempt
     Route: 048
  2. NIFEDIPINE [Suspect]
     Active Substance: NIFEDIPINE
     Indication: Suicide attempt
     Route: 048
  3. METOPROLOL [Suspect]
     Active Substance: METOPROLOL
     Indication: Suicide attempt
     Route: 048
  4. GLYBURIDE [Suspect]
     Active Substance: GLYBURIDE
     Indication: Suicide attempt
     Route: 048
  5. AMLODIPINE [Suspect]
     Active Substance: AMLODIPINE BESYLATE
     Indication: Suicide attempt
     Route: 048
  6. METFORMIN [Suspect]
     Active Substance: METFORMIN HYDROCHLORIDE
     Indication: Suicide attempt
     Route: 048
  7. TOPIRAMATE [Suspect]
     Active Substance: TOPIRAMATE
     Indication: Suicide attempt
     Route: 048
  8. LOSARTAN [Suspect]
     Active Substance: LOSARTAN
     Indication: Suicide attempt
     Route: 048
  9. HYDROXYZINE [Suspect]
     Active Substance: HYDROXYZINE HYDROCHLORIDE
     Indication: Suicide attempt
     Route: 048
  10. BUSPIRONE [Suspect]
     Active Substance: BUSPIRONE HYDROCHLORIDE
     Indication: Suicide attempt
     Route: 048

REACTIONS (1)
  - Completed suicide [Fatal]
